FAERS Safety Report 10058033 (Version 1)
Quarter: 2014Q2

REPORT INFORMATION
  Report Type: Spontaneous
  Country: US (occurrence: None)
  Receive Date: 20140403
  Receipt Date: 20140403
  Transmission Date: 20141212
  Serious: Yes (Other)
  Sender: FDA-Public Use
  Company Number: None

PATIENT
  Age: 47 Year
  Sex: Female
  Weight: 93.44 kg

DRUGS (16)
  1. PACLITAXEL 150MG (TAXOL) [Suspect]
     Indication: BREAST CANCER STAGE II
     Dates: start: 20140113, end: 20140331
  2. ALOXI [Concomitant]
  3. DEXAMETHASONE [Concomitant]
  4. DIPHENHYDRAMINE [Concomitant]
  5. RANITIDINE [Concomitant]
  6. CALCIUM WITH VITAMIN B [Concomitant]
  7. FISH OIL + D3 [Concomitant]
  8. FLONASE [Concomitant]
  9. GLUCOSAMINE [Concomitant]
  10. MULTIPLE VITAMIN [Concomitant]
  11. OXYCODONE WITH ACETAMINOPHEN [Concomitant]
  12. TOVIAZ [Concomitant]
  13. ZYRTEC [Concomitant]
  14. OMEPRAZOLE [Concomitant]
  15. ONDANSETRON [Concomitant]
  16. PROCHLORPERAZINE [Concomitant]

REACTIONS (6)
  - Hypoaesthesia oral [None]
  - Candida infection [None]
  - Rash macular [None]
  - Paraesthesia oral [None]
  - Paraesthesia oral [None]
  - Herpes virus infection [None]
